FAERS Safety Report 9870507 (Version 1)
Quarter: 2014Q1

REPORT INFORMATION
  Report Type: Spontaneous
  Country: US (occurrence: None)
  Receive Date: 20140204
  Receipt Date: 20140204
  Transmission Date: 20141002
  Serious: No
  Sender: FDA-Public Use
  Company Number: None

PATIENT
  Age: 61 Year
  Sex: Female
  Weight: 66.23 kg

DRUGS (2)
  1. OSPHENA [Suspect]
     Indication: VULVOVAGINAL DRYNESS
     Dosage: 1 PILL  ONCE DAILY  TAKEN BY MOUTH
     Route: 048
     Dates: start: 20140124, end: 20140126
  2. OSPHENA [Suspect]
     Indication: DYSPAREUNIA
     Dosage: 1 PILL  ONCE DAILY  TAKEN BY MOUTH
     Route: 048
     Dates: start: 20140124, end: 20140126

REACTIONS (1)
  - Rash generalised [None]
